FAERS Safety Report 4756447-7 (Version None)
Quarter: 2005Q3

REPORT INFORMATION
  Report Type: 
  Country: None (occurrence: None)
  Receive Date: 20050830
  Receipt Date: 20050627
  Transmission Date: 20060218
  Serious: No
  Sender: FDA-Public Use
  Company Number: US-GLAXOSMITHKLINE-A0564305A

PATIENT
  Age: 63 Year
  Sex: Male

DRUGS (6)
  1. WELLBUTRIN XL [Suspect]
     Indication: DEPRESSION
     Dosage: 300MG PER DAY
     Route: 048
     Dates: start: 20050616
  2. HYZAAR [Concomitant]
  3. LIPITOR [Concomitant]
  4. PERIOSTAT [Concomitant]
  5. XALATAN [Concomitant]
  6. TIMOLOL EYE DROPS [Concomitant]

REACTIONS (1)
  - BLOOD PRESSURE INCREASED [None]
